FAERS Safety Report 10155452 (Version 1)
Quarter: 2014Q2

REPORT INFORMATION
  Report Type: Spontaneous
  Country: US (occurrence: None)
  Receive Date: 20140421
  Receipt Date: 20140421
  Transmission Date: 20141212
  Serious: No
  Sender: FDA-Public Use
  Company Number: AEGR000037

PATIENT
  Age: 62 Year
  Sex: Female
  Weight: 56.7 kg

DRUGS (12)
  1. JUXTAPID (LOMITAPIDE) CAPSULE, 5MG [Suspect]
     Indication: TYPE IIA HYPERLIPIDAEMIA
     Route: 048
     Dates: start: 20130413
  2. FOLIC ACID (FOLIC ACID) TABLET [Concomitant]
  3. TOPAMAX MIGRAENE (TOPIRAMATE) TABLET [Concomitant]
  4. SINGULAIR (MONTELUKAST SODIUM) TABLET [Concomitant]
  5. ZYRTEC (CETIRIZINE HYDROCHLORIDE) TABLET [Concomitant]
  6. ZETIA (EZETIMIBE) TABLET [Concomitant]
  7. FISH OIL (FISH OIL) CAPSULE [Concomitant]
  8. VITAMIN D3 (COLECALCIFEROL) [Concomitant]
  9. VITAMIN B-12 (CYANOCOBALAMIN) [Concomitant]
  10. ZOMIG ORO (ZOLMITRIPTAN) TABLET [Concomitant]
  11. FENOFIBRATE MICRO (FENOFIBRATE) TABLET [Concomitant]
  12. FENOFIBRATE (FENOFIBRATE) (FENOFIBRATE) [Concomitant]

REACTIONS (2)
  - Diarrhoea [None]
  - Weight decreased [None]
